FAERS Safety Report 7750617-1 (Version None)
Quarter: 2011Q3

REPORT INFORMATION
  Report Type: 
  Country: None (occurrence: None)
  Receive Date: 20110914
  Receipt Date: 20110908
  Transmission Date: 20111222
  Serious: Yes (Hospitalization)
  Sender: FDA-Public Use
  Company Number: US-GLAXOSMITHKLINE-A0883907A

PATIENT
  Age: 60 Year
  Sex: Female
  Weight: 93.2 kg

DRUGS (7)
  1. ATENOLOL [Concomitant]
  2. GLUCOVANCE [Concomitant]
  3. ULTRACET [Concomitant]
  4. CRESTOR [Concomitant]
  5. AVANDIA [Suspect]
     Indication: DIABETES MELLITUS
     Dosage: 8MG PER DAY
     Route: 048
     Dates: start: 20011211, end: 20070613
  6. NEXIUM [Concomitant]
  7. STARLIX [Concomitant]

REACTIONS (5)
  - ANGINA UNSTABLE [None]
  - PERIPHERAL VASCULAR DISORDER [None]
  - HYPERTENSION [None]
  - CORONARY ARTERY DISEASE [None]
  - HYPERLIPIDAEMIA [None]
